FAERS Safety Report 5311217-6 (Version None)
Quarter: 2007Q2

REPORT INFORMATION
  Report Type: 
  Country: None (occurrence: None)
  Receive Date: 20070423
  Receipt Date: 20070409
  Transmission Date: 20071010
  Serious: Yes (Hospitalization, Other)
  Sender: FDA-Public Use
  Company Number: 02100-JPN-07-0190

PATIENT
  Age: 65 Year
  Sex: Male

DRUGS (16)
  1. CILOSTAZOL [Suspect]
     Indication: LACUNAR INFARCTION
     Dosage: 200 MG ORAL
     Route: 048
     Dates: start: 20041203, end: 20070112
  2. GLIBENCLAMIDE [Concomitant]
  3. ACARBOSE [Concomitant]
  4. BUFORMIN HYDROCHLORIDE [Concomitant]
  5. PERINDOPRIL ERBUMINE [Concomitant]
  6. VALSARTAN [Concomitant]
  7. TRICHLORMETHIAZIDE [Concomitant]
  8. NIFEDIPINE [Concomitant]
  9. OLMESARTAN MEDOXOMIL [Concomitant]
  10. GLIMEPIRIDE [Concomitant]
  11. FUROSEMIDE [Concomitant]
  12. ALLOPURINOL [Concomitant]
  13. GUANABENZ ACETATE [Concomitant]
  14. ATORVASTATIN CALCIUM [Concomitant]
  15. SPIRONOLACTONE [Concomitant]
  16. MAGNESIUM OXIDE [Concomitant]

REACTIONS (17)
  - ANAEMIA [None]
  - BLOOD ALBUMIN ABNORMAL [None]
  - BLOOD CREATININE INCREASED [None]
  - BLOOD URIC ACID INCREASED [None]
  - BUNDLE BRANCH BLOCK RIGHT [None]
  - CARDIAC FAILURE [None]
  - ELECTROCARDIOGRAM QT CORRECTED INTERVAL SHORTENED [None]
  - ELECTROCARDIOGRAM ST-T CHANGE [None]
  - ELECTROCARDIOGRAM T WAVE ABNORMAL [None]
  - GLYCOSYLATED HAEMOGLOBIN INCREASED [None]
  - HEPATIC ENZYME INCREASED [None]
  - OEDEMA PERIPHERAL [None]
  - PRINZMETAL ANGINA [None]
  - PROTEIN TOTAL ABNORMAL [None]
  - PROTEINURIA [None]
  - RENAL FAILURE [None]
  - VENTRICULAR HYPERTROPHY [None]
